FAERS Safety Report 25515054 (Version 2)
Quarter: 2025Q3

REPORT INFORMATION
  Report Type: Spontaneous
  Country: EU (occurrence: EU)
  Receive Date: 20250703
  Receipt Date: 20250812
  Transmission Date: 20251020
  Serious: Yes (Other)
  Sender: NOVARTIS
  Company Number: EU-002147023-NVSC2025SK102414

PATIENT
  Sex: Female

DRUGS (2)
  1. KISQALI [Suspect]
     Active Substance: RIBOCICLIB SUCCINATE
     Indication: Hormone receptor positive HER2 negative breast cancer
     Dosage: 600 MG, QD (3 CYCLES)
     Route: 065
     Dates: end: 20250619
  2. LETROZOLE [Suspect]
     Active Substance: LETROZOLE
     Indication: Hormone receptor positive HER2 negative breast cancer
     Route: 065
     Dates: end: 20250619

REACTIONS (4)
  - Hepatotoxicity [Not Recovered/Not Resolved]
  - Chromaturia [Unknown]
  - Faeces pale [Unknown]
  - Fatigue [Unknown]

NARRATIVE: CASE EVENT DATE: 20250619
